FAERS Safety Report 5921589-7 (Version None)
Quarter: 2008Q3

REPORT INFORMATION
  Report Type: 
  Country: None (occurrence: None)
  Receive Date: 20080909
  Receipt Date: 20071108
  Transmission Date: 20090109
  Serious: Yes (Hospitalization)
  Sender: FDA-Public Use
  Company Number: 163-20785-07060395 (1)

PATIENT
  Age: 84 Year
  Sex: Male

DRUGS (3)
  1. THALOMID [Suspect]
     Indication: MULTIPLE MYELOMA
     Dosage: 150MG - 100MG, DAILY, ORAL
     Route: 048
     Dates: start: 20061025, end: 20061101
  2. PREDNISONE [Concomitant]
  3. AREDIA [Concomitant]

REACTIONS (3)
  - DEEP VEIN THROMBOSIS [None]
  - RASH [None]
  - URTICARIA [None]
